FAERS Safety Report 20758868 (Version 1)
Quarter: 2022Q2

REPORT INFORMATION
  Report Type: Report from Study
  Country: IT (occurrence: None)
  Receive Date: 20220427
  Receipt Date: 20220427
  Transmission Date: 20220721
  Serious: Yes (Other)
  Sender: FDA-Public Use
  Company Number: 2022A160557

PATIENT
  Age: 74 Year
  Sex: Female
  Weight: 52 kg

DRUGS (2)
  1. OSIMERTINIB [Suspect]
     Active Substance: OSIMERTINIB
     Route: 048
  2. LEVOTHYROXINE [Concomitant]
     Active Substance: LEVOTHYROXINE
     Dosage: 75/50 UG
     Route: 048

REACTIONS (4)
  - Phlebitis [Recovering/Resolving]
  - Oedema peripheral [Unknown]
  - Erythema [Unknown]
  - Heat illness [Unknown]

NARRATIVE: CASE EVENT DATE: 20220310
